FAERS Safety Report 12084253 (Version 1)
Quarter: 2016Q1

REPORT INFORMATION
  Report Type: Spontaneous
  Country: US (occurrence: None)
  Receive Date: 20160216
  Receipt Date: 20160216
  Transmission Date: 20160526
  Serious: Yes (Other)
  Sender: FDA-Public Use
  Company Number: None

PATIENT
  Age: 30 Year
  Sex: Female
  Weight: 53.52 kg

DRUGS (4)
  1. YAZ [Concomitant]
     Active Substance: DROSPIRENONE\ETHINYL ESTRADIOL
  2. VITAMIN D [Concomitant]
     Active Substance: CHOLECALCIFEROL
  3. VICKS NYQUIL SEVERE COLD AND FLU [Suspect]
     Active Substance: ACETAMINOPHEN\DEXTROMETHORPHAN HYDROBROMIDE\DOXYLAMINE SUCCINATE\PHENYLEPHRINE
     Indication: NASOPHARYNGITIS
     Route: 048
     Dates: start: 20160214, end: 20160214
  4. OMEGA 3 [Concomitant]
     Active Substance: OMEGA-3 FATTY ACIDS

REACTIONS (7)
  - Retching [None]
  - Chills [None]
  - Diarrhoea [None]
  - Insomnia [None]
  - Nausea [None]
  - Cold sweat [None]
  - Panic attack [None]

NARRATIVE: CASE EVENT DATE: 20160214
